FAERS Safety Report 9807573 (Version 1)
Quarter: 2014Q1

REPORT INFORMATION
  Report Type: Spontaneous
  Country: US (occurrence: US)
  Receive Date: 20140110
  Receipt Date: 20140110
  Transmission Date: 20141002
  Serious: No
  Sender: FDA-Public Use
  Company Number: US-SANOFI-AVENTIS-2013SA040634

PATIENT
  Sex: Male

DRUGS (5)
  1. PLAVIX [Suspect]
     Indication: CEREBROVASCULAR ACCIDENT
     Route: 048
     Dates: start: 200507
  2. SINGULAIR [Concomitant]
  3. ADVAIR [Concomitant]
  4. ANTIHYPERTENSIVES [Concomitant]
  5. PREVACID [Concomitant]

REACTIONS (1)
  - Gastrooesophageal reflux disease [Unknown]
